FAERS Safety Report 8720440 (Version 8)
Quarter: 2013Q1

REPORT INFORMATION
  Report Type: Spontaneous
  Country: US (occurrence: US)
  Receive Date: 20120813
  Receipt Date: 20130329
  Transmission Date: 20140127
  Serious: Yes (Death)
  Sender: FDA-Public Use
  Company Number: US-PFIZER INC-2012194508

PATIENT
  Age: 50 Year
  Sex: Male

DRUGS (6)
  1. INLYTA [Suspect]
     Indication: RENAL CANCER
     Dosage: 10 MG, 1X/DAY
     Route: 048
     Dates: start: 201205
  2. INLYTA [Suspect]
     Dosage: 7 MG, 2X/DAY
     Route: 048
  3. INLYTA [Suspect]
     Dosage: 8 MG, 2X/DAY
     Route: 048
     Dates: start: 20120525
  4. INLYTA [Suspect]
     Dosage: 8 MG, EVERY TWELVE HOURS (ONE 5 MG TABLET + THREE 1 MG TABLETS)
     Route: 048
     Dates: start: 20130126
  5. INLYTA [Suspect]
     Dosage: UNK
  6. INLYTA [Suspect]
     Dosage: UNK

REACTIONS (19)
  - Death [Fatal]
  - Blood thyroid stimulating hormone increased [Recovered/Resolved]
  - Increased tendency to bruise [Not Recovered/Not Resolved]
  - Diarrhoea [Not Recovered/Not Resolved]
  - Fatigue [Not Recovered/Not Resolved]
  - Decreased appetite [Unknown]
  - Weight increased [Unknown]
  - Hyperaesthesia [Recovering/Resolving]
  - Contusion [Unknown]
  - Dysphonia [Recovering/Resolving]
  - Influenza like illness [Unknown]
  - Tongue disorder [Unknown]
  - Weight decreased [Unknown]
  - Oral discomfort [Unknown]
  - Speech disorder [Unknown]
  - Stomatitis [Not Recovered/Not Resolved]
  - Hypertension [Not Recovered/Not Resolved]
  - Skin atrophy [Unknown]
  - Laceration [Unknown]
